FAERS Safety Report 8152264-9 (Version None)
Quarter: 2012Q1

REPORT INFORMATION
  Report Type: 
  Country: None (occurrence: None)
  Receive Date: 20120221
  Receipt Date: 20120213
  Transmission Date: 20120608
  Serious: Yes (Hospitalization, Other)
  Sender: FDA-Public Use
  Company Number: US-BAYER-2011-029153

PATIENT
  Age: 21 Year
  Sex: Female
  Weight: 79.365 kg

DRUGS (6)
  1. YAZ [Suspect]
     Indication: PREMENSTRUAL SYNDROME
     Dosage: UNK
     Route: 048
     Dates: start: 20080101
  2. YAZ [Suspect]
  3. VICODIN [Concomitant]
  4. XANAX [Concomitant]
  5. TRILYTE [Concomitant]
  6. HYDROCODONE [Concomitant]

REACTIONS (4)
  - CHOLECYSTITIS CHRONIC [None]
  - INJURY [None]
  - GALLBLADDER INJURY [None]
  - PAIN [None]
